FAERS Safety Report 8609204-5 (Version None)
Quarter: 2012Q3

REPORT INFORMATION
  Report Type: 
  Country: None (occurrence: None)
  Receive Date: 20120821
  Receipt Date: 20120808
  Transmission Date: 20120928
  Serious: No
  Sender: FDA-Public Use
  Company Number: US-ASTRAZENECA-2012SE56260

PATIENT
  Age: 63 Year
  Sex: Female

DRUGS (18)
  1. HYDROCHLOROT [Concomitant]
  2. SIMVASTATIN [Concomitant]
  3. WOMENS MULTIVITAMIN [Concomitant]
     Dosage: DAILY
  4. GARLIC [Concomitant]
  5. METFORMIN [Concomitant]
  6. DORZOLAMIDE HCL [Concomitant]
  7. ATENOLOL [Concomitant]
     Route: 048
  8. OMEPRAZOLE [Concomitant]
     Route: 048
  9. QVAR 40 [Concomitant]
     Dosage: 1 PUFF, BID
  10. LOVAZA [Concomitant]
  11. OMEPRAZOLE [Concomitant]
     Route: 048
  12. OMEPRAZOLE [Concomitant]
     Route: 048
  13. ZESTRIL [Suspect]
     Route: 048
  14. LATANOPROST [Concomitant]
  15. CALCIUM AND VITAMIN D [Concomitant]
  16. ASPIRIN [Concomitant]
  17. MYLAN [Concomitant]
  18. NYSTAT TRIUM CRE TARO [Concomitant]
     Dosage: TID

REACTIONS (2)
  - MULTIPLE ALLERGIES [None]
  - DRUG HYPERSENSITIVITY [None]
